FAERS Safety Report 5615225-7 (Version None)
Quarter: 2008Q1

REPORT INFORMATION
  Report Type: 
  Country: None (occurrence: None)
  Receive Date: 20080206
  Receipt Date: 20080130
  Transmission Date: 20080703
  Serious: Yes (Other)
  Sender: FDA-Public Use
  Company Number: ES-AVENTIS-200811123GDDC

PATIENT
  Age: 79 Year
  Sex: Female

DRUGS (1)
  1. ARAVA [Suspect]
     Indication: RHEUMATOID ARTHRITIS
     Route: 048
     Dates: start: 20070901, end: 20071026

REACTIONS (4)
  - ASTHENIA [None]
  - DYSPNOEA [None]
  - RESPIRATORY FAILURE [None]
  - WEIGHT DECREASED [None]
